FAERS Safety Report 14645576 (Version 1)
Quarter: 2018Q1

REPORT INFORMATION
  Report Type: Spontaneous
  Country: FR (occurrence: FR)
  Receive Date: 20180316
  Receipt Date: 20180316
  Transmission Date: 20180509
  Serious: Yes (Other)
  Sender: FDA-Public Use
  Company Number: FR-MERCK KGAA-2043876

PATIENT
  Age: 31 Year
  Sex: Female

DRUGS (2)
  1. NOVOTHYROX [Suspect]
     Active Substance: LEVOTHYROXINE SODIUM
     Indication: PRODUCT USED FOR UNKNOWN INDICATION
  2. LEVOTHYROX NF [Suspect]
     Active Substance: LEVOTHYROXINE SODIUM

REACTIONS (18)
  - Asthenia [None]
  - Affect lability [Recovering/Resolving]
  - Loss of personal independence in daily activities [None]
  - Fatigue [None]
  - Insomnia [Recovering/Resolving]
  - Psychiatric symptom [None]
  - Weight increased [None]
  - Amnesia [None]
  - Chest discomfort [Recovered/Resolved]
  - Palpitations [None]
  - Headache [Recovered/Resolved]
  - Depression [None]
  - Loss of libido [None]
  - Gamma-glutamyltransferase increased [None]
  - Myalgia [None]
  - Chest pain [None]
  - Blood thyroid stimulating hormone abnormal [None]
  - Social avoidant behaviour [None]

NARRATIVE: CASE EVENT DATE: 201706
